FAERS Safety Report 5572776-1 (Version None)
Quarter: 2007Q4

REPORT INFORMATION
  Report Type: 
  Country: None (occurrence: None)
  Receive Date: 20071223
  Receipt Date: 20071213
  Transmission Date: 20080405
  Serious: Yes (Other)
  Sender: FDA-Public Use
  Company Number: PHBS2007GT20930

PATIENT
  Age: 54 Year
  Sex: Female

DRUGS (2)
  1. ESTRADERM [Suspect]
     Indication: MENOPAUSE
     Route: 062
     Dates: start: 20050101
  2. INHIBACE [Concomitant]
     Dosage: 5 MG/D
     Route: 048

REACTIONS (3)
  - DYSLIPIDAEMIA [None]
  - METRORRHAGIA [None]
  - UTERINE LEIOMYOMA [None]
